FAERS Safety Report 8747389 (Version 3)
Quarter: 2012Q4

REPORT INFORMATION
  Report Type: Report from Study
  Country: CA (occurrence: CA)
  Receive Date: 20120827
  Receipt Date: 20121210
  Transmission Date: 20130627
  Serious: Yes (Other)
  Sender: FDA-Public Use
  Company Number: CA-JNJFOC-20120810476

PATIENT
  Age: 18 Year
  Sex: Female
  Weight: 64.4 kg

DRUGS (5)
  1. REMICADE [Suspect]
     Indication: CROHN^S DISEASE
     Route: 042
     Dates: start: 20120510
  2. TYLENOL 4 [Concomitant]
     Route: 065
  3. MIRENA [Concomitant]
     Route: 065
  4. HYDROMORPH [Concomitant]
     Route: 065
  5. PRAMIPEXOLE [Concomitant]
     Route: 065

REACTIONS (4)
  - Ovarian cyst [Unknown]
  - Ovarian cyst ruptured [Recovered/Resolved]
  - Drug ineffective [Unknown]
  - Abdominal pain lower [Recovered/Resolved]
